FAERS Safety Report 9103718 (Version 2)
Quarter: 2013Q1

REPORT INFORMATION
  Report Type: Report from Study
  Country: JP (occurrence: JP)
  Receive Date: 20130219
  Receipt Date: 20130304
  Transmission Date: 20140127
  Serious: Yes (Hospitalization, Other)
  Sender: FDA-Public Use
  Company Number: JP-UCBSA-078484

PATIENT
  Age: 60 Year
  Sex: Female
  Weight: 43 kg

DRUGS (3)
  1. E KEPPRA [Suspect]
     Indication: PARTIAL SEIZURES WITH SECONDARY GENERALISATION
     Route: 048
     Dates: start: 20121003, end: 20130107
  2. SELENICA-R [Concomitant]
     Indication: PARTIAL SEIZURES WITH SECONDARY GENERALISATION
     Dosage: DAILY DOSE: 800 MG
     Route: 048
     Dates: end: 20130107
  3. MYSTAN [Concomitant]
     Indication: PARTIAL SEIZURES WITH SECONDARY GENERALISATION
     Dosage: DAILY DOSE: 10 MG
     Route: 048
     Dates: end: 20130107

REACTIONS (1)
  - Glioblastoma [Not Recovered/Not Resolved]
